FAERS Safety Report 4408094-4 (Version None)
Quarter: 2004Q3

REPORT INFORMATION
  Report Type: 
  Country: None (occurrence: None)
  Receive Date: 20040722
  Receipt Date: 20040707
  Transmission Date: 20050211
  Serious: Yes (Death, Hospitalization)
  Sender: FDA-Public Use
  Company Number: 2004-DE-03996DE(1)

PATIENT
  Age: 78 Year
  Sex: Male

DRUGS (4)
  1. SPIRIVA [Suspect]
     Indication: CHRONIC OBSTRUCTIVE AIRWAYS DISEASE
     Dosage: 10 MCG (18 MCG, 1 IN 1 D) IH
     Route: 055
     Dates: start: 20040426, end: 20040506
  2. STEROIDS [Concomitant]
  3. THEOPHYLLINE(NR) [Concomitant]
  4. .. [Concomitant]

REACTIONS (7)
  - CHRONIC OBSTRUCTIVE AIRWAYS DISEASE [None]
  - DISEASE PROGRESSION [None]
  - LUNG DISORDER [None]
  - MUCOSAL EROSION [None]
  - ORAL PAIN [None]
  - PHARYNGOLARYNGEAL PAIN [None]
  - SUDDEN DEATH [None]
